FAERS Safety Report 24669375 (Version 3)
Quarter: 2025Q1

REPORT INFORMATION
  Report Type: Spontaneous
  Country: CA (occurrence: CA)
  Receive Date: 20241127
  Receipt Date: 20250324
  Transmission Date: 20250409
  Serious: Yes (Death)
  Sender: IMMUNOCORE
  Company Number: CA-Medison-000749

PATIENT

DRUGS (7)
  1. TEBENTAFUSP [Suspect]
     Active Substance: TEBENTAFUSP
     Indication: Product used for unknown indication
     Route: 042
     Dates: start: 20241002
  2. TEBENTAFUSP [Suspect]
     Active Substance: TEBENTAFUSP
     Route: 042
     Dates: start: 20241009
  3. TEBENTAFUSP [Suspect]
     Active Substance: TEBENTAFUSP
     Route: 042
     Dates: start: 20241016
  4. TEBENTAFUSP [Suspect]
     Active Substance: TEBENTAFUSP
     Route: 042
     Dates: start: 20241023
  5. HYDROMORPHONE [Concomitant]
     Active Substance: HYDROMORPHONE
     Indication: Product used for unknown indication
     Dosage: 6 MILLIGRAM, BID
  6. HYDROMORPHONE [Concomitant]
     Active Substance: HYDROMORPHONE
  7. PANTOPRAZOLE [Concomitant]
     Active Substance: PANTOPRAZOLE
     Indication: Product used for unknown indication
     Dosage: 40 MILLIGRAM, QD

REACTIONS (2)
  - Disease progression [Fatal]
  - Product dose omission issue [Unknown]

NARRATIVE: CASE EVENT DATE: 20241030
